FAERS Safety Report 12523273 (Version 2)
Quarter: 2016Q4

REPORT INFORMATION
  Report Type: Spontaneous
  Country: KR (occurrence: KR)
  Receive Date: 20160702
  Receipt Date: 20161025
  Transmission Date: 20170207
  Serious: No
  Sender: FDA-Public Use
  Company Number: KR-AMGEN-KORSP2016076043

PATIENT
  Age: 78 Year
  Sex: Female

DRUGS (1)
  1. REGPARA [Suspect]
     Active Substance: CINACALCET HYDROCHLORIDE
     Indication: PRODUCT USED FOR UNKNOWN INDICATION
     Dosage: 25 MG, UNK
     Route: 065
     Dates: start: 20150206

REACTIONS (2)
  - Osteoarthritis [Unknown]
  - Gastritis [Unknown]

NARRATIVE: CASE EVENT DATE: 20150304
